FAERS Safety Report 5752856-8 (Version None)
Quarter: 2008Q2

REPORT INFORMATION
  Report Type: 
  Country: None (occurrence: None)
  Receive Date: 20080529
  Receipt Date: 20080517
  Transmission Date: 20081010
  Serious: Yes (Other)
  Sender: FDA-Public Use
  Company Number: US-PFIZER INC-2008043556

PATIENT
  Sex: Male

DRUGS (1)
  1. LYRICA [Suspect]
     Indication: NEURALGIA

REACTIONS (7)
  - BALANCE DISORDER [None]
  - DIZZINESS [None]
  - FALL [None]
  - INTRAOCULAR LENS IMPLANT [None]
  - TOOTH FRACTURE [None]
  - VISION BLURRED [None]
  - VISUAL ACUITY REDUCED [None]
